FAERS Safety Report 15062254 (Version 2)
Quarter: 2018Q3

REPORT INFORMATION
  Report Type: Spontaneous
  Country: ES (occurrence: ES)
  Receive Date: 20180625
  Receipt Date: 20180704
  Transmission Date: 20181010
  Serious: Yes (Other)
  Sender: FDA-Public Use
  Company Number: ES-AMGEN-ESPSP2018077282

PATIENT
  Age: 46 Year
  Sex: Male

DRUGS (4)
  1. EZETIMIBE. [Concomitant]
     Active Substance: EZETIMIBE
     Dosage: 10 MG/DL, UNK
  2. ENALAPRIL [Concomitant]
     Active Substance: ENALAPRIL
     Dosage: 20 MG, UNK
  3. ROSUVASTATIN. [Concomitant]
     Active Substance: ROSUVASTATIN
     Dosage: 20 MG, QD
  4. REPATHA [Suspect]
     Active Substance: EVOLOCUMAB
     Indication: TYPE IIA HYPERLIPIDAEMIA
     Dosage: UNK
     Route: 065
     Dates: start: 201709, end: 201804

REACTIONS (6)
  - Low density lipoprotein decreased [Unknown]
  - Foreign body in eye [Recovered/Resolved]
  - Ulcerative keratitis [Recovered/Resolved]
  - Keratitis [Recovered/Resolved]
  - Conjunctivitis allergic [Recovered/Resolved]
  - Adenoviral conjunctivitis [Recovered/Resolved]
